FAERS Safety Report 6842234-2 (Version None)
Quarter: 2010Q3

REPORT INFORMATION
  Report Type: 
  Country: None (occurrence: None)
  Receive Date: 20100709
  Receipt Date: 20100625
  Transmission Date: 20110219
  Serious: Yes (Other)
  Sender: FDA-Public Use
  Company Number: 2010SP035830

PATIENT
  Age: 37 Year
  Sex: Female
  Weight: 53 kg

DRUGS (2)
  1. IMPLANON [Suspect]
     Indication: CONTRACEPTION
     Dosage: 68 MG; ; SBDE
     Route: 059
     Dates: start: 20091106
  2. IMPLANON [Suspect]

REACTIONS (4)
  - ANAEMIA [None]
  - DEPRESSION [None]
  - MENORRHAGIA [None]
  - WEIGHT DECREASED [None]
